FAERS Safety Report 25679096 (Version 1)
Quarter: 2025Q3

REPORT INFORMATION
  Report Type: Spontaneous
  Country: US (occurrence: US)
  Receive Date: 20250814
  Receipt Date: 20250814
  Transmission Date: 20251021
  Serious: No
  Sender: LYNE LABORATORIES
  Company Number: US-Lyne Laboratories Inc.-2182464

PATIENT

DRUGS (2)
  1. NYSTATIN [Suspect]
     Active Substance: NYSTATIN
     Indication: Dermatitis diaper
  2. NYSTATIN [Suspect]
     Active Substance: NYSTATIN
     Indication: Fungal infection

REACTIONS (1)
  - Drug ineffective for unapproved indication [Unknown]
